FAERS Safety Report 5915446-X (Version None)
Quarter: 2008Q4

REPORT INFORMATION
  Report Type: 
  Country: None (occurrence: None)
  Receive Date: 20081010
  Receipt Date: 20081006
  Transmission Date: 20090506
  Serious: Yes (Hospitalization)
  Sender: FDA-Public Use
  Company Number: US-ELI_LILLY_AND_COMPANY-US200808004693

PATIENT
  Age: 52 Year
  Sex: Male

DRUGS (4)
  1. HUMALOG [Suspect]
     Dosage: 15 U, WITH MEALS
     Dates: end: 20080825
  2. HUMALOG [Suspect]
  3. LANTUS [Concomitant]
     Dosage: 50 U, AT BEDTIME
  4. VANCOMYCIN HYDROCHLORIDE [Concomitant]
     Indication: INJECTION SITE INFECTION

REACTIONS (6)
  - BLOOD GLUCOSE INCREASED [None]
  - DRUG HYPERSENSITIVITY [None]
  - INJECTION SITE ABSCESS [None]
  - INJECTION SITE ERYTHEMA [None]
  - INJECTION SITE INFECTION [None]
  - INJECTION SITE SCAR [None]
